FAERS Safety Report 8135066-9 (Version None)
Quarter: 2012Q1

REPORT INFORMATION
  Report Type: 
  Country: None (occurrence: None)
  Receive Date: 20120210
  Receipt Date: 20120201
  Transmission Date: 20120608
  Serious: Yes (Other)
  Sender: FDA-Public Use
  Company Number: TPA2011A05279

PATIENT
  Age: 80 Year
  Sex: Male
  Weight: 117.9352 kg

DRUGS (52)
  1. ROSUVASTATIN [Concomitant]
  2. TEMAZEPAM [Concomitant]
  3. LEVETIRACETAM [Concomitant]
  4. FUROSEMIDE [Concomitant]
  5. PRIMIDONE [Concomitant]
  6. OXYCODONE 5MG/ACETAMINOPHEN 325 MG (PARACETAMOL, OXYCODONE HYDROCHLORI [Concomitant]
  7. XANAX [Concomitant]
  8. PETROLATUM (PETROLATUM) [Concomitant]
  9. GABAPENTIN [Concomitant]
  10. NITROGLYCERIN [Concomitant]
  11. ROSIGLITAZONE MALEATE [Concomitant]
  12. APAP 650MG/HYDROCODONE 10MG (PARACETAMOL, HYDROCODONE) [Concomitant]
  13. IBUPROFEN [Concomitant]
  14. CITALOPRAM HYDROBROMIDE [Concomitant]
  15. DOCUSATE NA (DOCUSATE SODIUM) [Concomitant]
  16. NIACIN [Concomitant]
  17. ACETAMINOPHEN WITH CODEINE (CODEINE, PARACETAMOL) [Concomitant]
  18. ZZ TROGLITAZONE (TROGLITAZONE) [Concomitant]
  19. POTASSIUM CHLORIDE [Concomitant]
  20. LORAZEPAM [Concomitant]
  21. SIMVASTATIN [Concomitant]
  22. ESCITALOPRAM OXALATE [Concomitant]
  23. LEXAPRO [Concomitant]
  24. CILOSTAZOL [Concomitant]
  25. MIRTAZAPINE [Concomitant]
  26. LISINOPRIL [Concomitant]
  27. METFORMIN HCL [Concomitant]
  28. ASPIRIN [Concomitant]
  29. ROPINIROLE HCL (ROPINIROLE HYDROCHLORIDE) [Concomitant]
  30. PYRIDOXINE HCL (PYRIDOXINE HYDROCHLORIDE) [Concomitant]
  31. SYMBICORT (FORMOTEROL FUMARATE, BUDESONIDE) (AEROSOL FOR INHALATION) [Concomitant]
  32. GLIPIZIDE [Concomitant]
  33. AMLODIPINE BESYLATE [Concomitant]
  34. METOCLOPRAMIDE HCL [Concomitant]
  35. OMEPRAZOLE [Concomitant]
  36. SERTRALINE HCL (SERTRALINE HYDROCHLORIDE) [Concomitant]
  37. AMITRIPTYLINE HCL [Concomitant]
  38. PLAVIX [Concomitant]
  39. ACTOS [Suspect]
     Indication: TYPE 2 DIABETES MELLITUS
     Dosage: 45 MG, 1 IN 1 D, PER ORAL 30 MG, 1 IN 1 D, PER ORAL
     Route: 048
     Dates: start: 20040420
  40. ACTOS [Suspect]
     Indication: TYPE 2 DIABETES MELLITUS
     Dosage: 45 MG, 1 IN 1 D, PER ORAL 30 MG, 1 IN 1 D, PER ORAL
     Route: 048
     Dates: start: 20110301
  41. ACTOS [Suspect]
     Indication: TYPE 2 DIABETES MELLITUS
     Dosage: 45 MG, 1 IN 1 D, PER ORAL 30 MG, 1 IN 1 D, PER ORAL
     Route: 048
     Dates: start: 20000502
  42. ACTOS [Suspect]
     Indication: TYPE 2 DIABETES MELLITUS
     Dosage: 45 MG, 1 IN 1 D, PER ORAL 30 MG, 1 IN 1 D, PER ORAL
     Route: 048
     Dates: start: 20100812
  43. ACTOS [Suspect]
     Indication: TYPE 2 DIABETES MELLITUS
     Dosage: 45 MG, 1 IN 1 D, PER ORAL 30 MG, 1 IN 1 D, PER ORAL
     Route: 048
     Dates: start: 20030710
  44. ACTOS [Suspect]
     Indication: TYPE 2 DIABETES MELLITUS
     Dosage: 45 MG, 1 IN 1 D, PER ORAL 30 MG, 1 IN 1 D, PER ORAL
     Route: 048
     Dates: start: 20020812
  45. ACTOS [Suspect]
     Indication: TYPE 2 DIABETES MELLITUS
     Dosage: 45 MG, 1 IN 1 D, PER ORAL 30 MG, 1 IN 1 D, PER ORAL
     Route: 048
     Dates: start: 20101229
  46. ACTOS [Suspect]
     Indication: TYPE 2 DIABETES MELLITUS
     Dosage: 45 MG, 1 IN 1 D, PER ORAL 30 MG, 1 IN 1 D, PER ORAL
     Route: 048
     Dates: start: 20010731
  47. LATANOPROST (LATANOPROST) (0.005 PERCENT, EYE DROPS) [Concomitant]
  48. TOPIRAMATE [Concomitant]
  49. EZETIMIBE [Concomitant]
  50. TRAZODONE HCL [Concomitant]
  51. IRON POLYSACCHARIDE COMPLEX (POLYSACCHARIDE-IRON COMPLEX) [Concomitant]
  52. METOPROLOL TARTRATE [Concomitant]

REACTIONS (6)
  - DYSPNOEA [None]
  - MICTURITION URGENCY [None]
  - RENAL FAILURE [None]
  - RENAL CYST [None]
  - BLADDER CANCER [None]
  - THERAPEUTIC PRODUCT INEFFECTIVE [None]
